FAERS Safety Report 9419165 (Version 3)
Quarter: 2013Q3

REPORT INFORMATION
  Report Type: Spontaneous
  Country: JP (occurrence: JP)
  Receive Date: 20130725
  Receipt Date: 20130904
  Transmission Date: 20140515
  Serious: Yes (Life-Threatening, Hospitalization, Disabling, Other)
  Sender: FDA-Public Use
  Company Number: JP-CELGENEUS-087-21880-13070799

PATIENT
  Age: 63 Year
  Sex: Male
  Weight: 58 kg

DRUGS (17)
  1. REVLIMID [Suspect]
     Indication: PLASMA CELL MYELOMA
     Dosage: 10 MILLIGRAM
     Route: 048
     Dates: start: 20130424
  2. VELCADE [Suspect]
     Indication: PLASMA CELL MYELOMA
     Route: 065
     Dates: start: 20130315, end: 20130522
  3. VELCADE [Suspect]
     Route: 065
     Dates: start: 20130419, end: 20130623
  4. DECADRON [Suspect]
     Indication: PLASMA CELL MYELOMA
     Dosage: 1 MILLIGRAM
     Route: 048
  5. DECADRON [Suspect]
     Route: 065
     Dates: start: 20130419, end: 20130623
  6. OMEPRAZOLE [Concomitant]
     Indication: PROPHYLAXIS
     Route: 048
  7. BAKTAR [Concomitant]
     Indication: PROPHYLAXIS
     Route: 048
  8. ALFAROL [Concomitant]
     Indication: PROPHYLAXIS
     Route: 048
  9. ZYLORIC [Concomitant]
     Indication: PRODUCT USED FOR UNKNOWN INDICATION
     Route: 065
  10. CALONAL [Concomitant]
     Indication: CANCER PAIN
     Dosage: 600 MILLIGRAM
     Route: 048
  11. ALOSENN [Concomitant]
     Indication: CONSTIPATION
     Route: 048
  12. ALLOZYM [Concomitant]
     Indication: HYPERURICAEMIA
     Route: 048
  13. BUFFERIN [Concomitant]
     Indication: PROPHYLAXIS
     Route: 048
  14. SODIUM PICOSULFATE [Concomitant]
     Indication: CONSTIPATION
     Route: 065
  15. ITRIZOLE [Concomitant]
     Indication: PROPHYLAXIS
     Route: 065
  16. OXYCONTIN [Concomitant]
     Indication: CANCER PAIN
     Dosage: 30 MILLIGRAM
     Route: 048
     Dates: start: 20130705
  17. ACICLOVIR [Concomitant]
     Indication: PROPHYLAXIS
     Dosage: 200 MILLIGRAM
     Route: 065
     Dates: start: 20130315, end: 20130610

REACTIONS (6)
  - Disseminated intravascular coagulation [Recovered/Resolved]
  - Herpes zoster disseminated [Recovering/Resolving]
  - Hepatic function abnormal [Recovering/Resolving]
  - Platelet count decreased [Recovered/Resolved]
  - Renal failure [Recovered/Resolved]
  - Encephalitis viral [Unknown]
